FAERS Safety Report 8906377 (Version 1)
Quarter: 2012Q4

REPORT INFORMATION
  Report Type: Spontaneous
  Country: US (occurrence: None)
  Receive Date: 20121109
  Receipt Date: 20121109
  Transmission Date: 20130627
  Serious: Yes (Other)
  Sender: FDA-Public Use
  Company Number: None

PATIENT
  Age: 78 Year
  Sex: Female
  Weight: 81.65 kg

DRUGS (1)
  1. VOLTAREN GEL [Suspect]

REACTIONS (5)
  - Blood pressure increased [None]
  - Pain in extremity [None]
  - Skin exfoliation [None]
  - Pruritus [None]
  - Alopecia [None]
